FAERS Safety Report 8838003 (Version 1)
Quarter: 2012Q4

REPORT INFORMATION
  Report Type: 
  Country: FR (occurrence: FR)
  Receive Date: 20121012
  Receipt Date: 20121012
  Transmission Date: 20130627
  Serious: Yes (Hospitalization)
  Sender: FDA-Public Use
  Company Number: FR-ROCHE-1144589

PATIENT
  Age: 75 Year
  Sex: Female

DRUGS (3)
  1. AVASTIN [Suspect]
     Indication: THYMOMA MALIGNANT
     Route: 042
     Dates: start: 20120626
  2. TAXOL [Suspect]
     Indication: THYMOMA MALIGNANT
     Route: 042
     Dates: start: 20120626
  3. CARBOPLATIN [Suspect]
     Indication: THYMOMA MALIGNANT

REACTIONS (1)
  - Agranulocytosis [Recovered/Resolved]
